FAERS Safety Report 6073104-8 (Version None)
Quarter: 2009Q2

REPORT INFORMATION
  Report Type: 
  Country: None (occurrence: None)
  Receive Date: 20090205
  Receipt Date: 20090122
  Transmission Date: 20091009
  Serious: Yes (Death, Life-Threatening, Other)
  Sender: FDA-Public Use
  Company Number: 2008001006

PATIENT
  Age: 60 Year
  Sex: Female

DRUGS (21)
  1. ERLOTINIB (ERLOTINIB HCL) (TABLET) (ERLOTINIB HC1) [Suspect]
     Indication: LUNG ADENOCARCINOMA
     Dosage: (150 MG,QD),ORAL ; (50 MG),ORAL
     Route: 048
     Dates: start: 20080215, end: 20081010
  2. DEPAS (ETIZOLAM) [Concomitant]
  3. DECADRON [Concomitant]
  4. CLONAZEPAM [Concomitant]
  5. MAGNESIUM OXIDE (MAGNESIUM OXIDE) [Concomitant]
  6. LAXOBERON (SODIUM PICOSULFATE) [Concomitant]
  7. HYALEIN (HYALURONATE SODIUM) [Concomitant]
  8. SODIUM BICARBONATE IN PLASTIC CONTAINER [Concomitant]
  9. MORPHINE [Concomitant]
  10. DECADRON [Concomitant]
  11. HYOSCINE HBR HYT [Concomitant]
  12. ZANTAC 150 [Concomitant]
  13. SERENACE (HALOPERIDOL) [Concomitant]
  14. PURSENNID (SENNA LEAF) [Concomitant]
  15. MOBIC [Concomitant]
  16. CEFAMEZIN [Concomitant]
  17. LOXONIN (LOXOPROFEN SODIUM) [Concomitant]
  18. ZYRTEC [Concomitant]
  19. MUCODYNE (CARBOCISTEINE) [Concomitant]
  20. CYTOTEC [Concomitant]
  21. RABEPRAZOLE SODIUM [Suspect]
     Indication: LUNG ADENOCARCINOMA
     Dosage: 150 MG, QD, ORAL
     Route: 048
     Dates: start: 20080215, end: 20081010

REACTIONS (21)
  - ALANINE AMINOTRANSFERASE INCREASED [None]
  - ANOREXIA [None]
  - ARRHYTHMIA [None]
  - ASPARTATE AMINOTRANSFERASE INCREASED [None]
  - ATRIAL FIBRILLATION [None]
  - COUGH [None]
  - DIARRHOEA [None]
  - DRY EYE [None]
  - DYSGEUSIA [None]
  - DYSPEPSIA [None]
  - HEPATIC CONGESTION [None]
  - HEPATIC FUNCTION ABNORMAL [None]
  - LIVER DISORDER [None]
  - MALIGNANT NEOPLASM PROGRESSION [None]
  - NAUSEA [None]
  - PERICARDIAL EFFUSION [None]
  - PERICARDITIS MALIGNANT [None]
  - RASH [None]
  - REFLUX OESOPHAGITIS [None]
  - SKIN REACTION [None]
  - STOMATITIS [None]
